FAERS Safety Report 5904239-5 (Version None)
Quarter: 2008Q3

REPORT INFORMATION
  Report Type: 
  Country: None (occurrence: None)
  Receive Date: 20080909
  Receipt Date: 20071126
  Transmission Date: 20090109
  Serious: Yes (Other)
  Sender: FDA-Public Use
  Company Number: 163-20785-07111415

PATIENT
  Age: 73 Year
  Sex: Female

DRUGS (5)
  1. THALOMID [Suspect]
     Indication: GAMMOPATHY
     Dosage: 50 MG, QHS, ORAL
     Route: 048
     Dates: start: 20070914, end: 20070920
  2. ONE A DAY WOMENS VITAMINS (VITAMINS WITH MINERALS) [Concomitant]
  3. FLUTICASONE PROPIONATE [Concomitant]
  4. TRAMADOL HYDROCHLORIDE AND ACETAMINOPHEN [Concomitant]
  5. BIEST/PROG [Concomitant]

REACTIONS (2)
  - CHEST PAIN [None]
  - PALPITATIONS [None]
